FAERS Safety Report 18873249 (Version 1)
Quarter: 2021Q1

REPORT INFORMATION
  Report Type: Other
  Country: IT (occurrence: IT)
  Receive Date: 20210210
  Receipt Date: 20210210
  Transmission Date: 20210420
  Serious: Yes (Other)
  Sender: FDA-Public Use
  Company Number: IT-ROCHE-2764981

PATIENT

DRUGS (1)
  1. TOCILIZUMAB. [Suspect]
     Active Substance: TOCILIZUMAB
     Indication: COVID-19 PNEUMONIA
     Route: 042

REACTIONS (10)
  - Alanine aminotransferase increased [Recovered/Resolved]
  - Staphylococcal infection [Unknown]
  - Burkholderia gladioli infection [Unknown]
  - Neutropenia [Recovered/Resolved]
  - Enterococcal infection [Unknown]
  - Urinary tract infection [Unknown]
  - Candida infection [Unknown]
  - Pneumonia [Unknown]
  - Pneumonia pseudomonal [Unknown]
  - Infection [Unknown]
